FAERS Safety Report 4860066-1 (Version None)
Quarter: 2005Q4

REPORT INFORMATION
  Report Type: 
  Country: None (occurrence: None)
  Receive Date: 20051219
  Receipt Date: 20050928
  Transmission Date: 20060501
  Serious: Yes (Hospitalization, Disabling)
  Sender: FDA-Public Use
  Company Number: US-MERCK-0509USA04892

PATIENT
  Age: 61 Year
  Sex: Male
  Weight: 105 kg

DRUGS (10)
  1. VIOXX [Suspect]
     Indication: OSTEOARTHRITIS
     Route: 048
     Dates: start: 20030902, end: 20040525
  2. AMBIEN [Concomitant]
     Indication: INSOMNIA
     Route: 065
  3. NEXIUM [Concomitant]
     Indication: GASTROOESOPHAGEAL REFLUX DISEASE
     Route: 065
  4. CIPROFLOXACIN [Concomitant]
     Indication: ANTIBIOTIC LEVEL
     Route: 065
  5. METRONIDAZOLE [Concomitant]
     Indication: ANTIBIOTIC LEVEL
     Route: 065
  6. BELLADONNA AND PHENOBARBITAL [Concomitant]
     Indication: GASTROINTESTINAL DISORDER
     Route: 065
  7. LISINOPRIL [Concomitant]
     Indication: BLOOD PRESSURE
     Route: 065
  8. FLEXERIL [Concomitant]
     Indication: MUSCLE RELAXANT THERAPY
     Route: 065
  9. ADVIL [Concomitant]
     Indication: ARTHRALGIA
     Route: 065
     Dates: start: 19980101, end: 20040101
  10. TYLENOL [Concomitant]
     Indication: ARTHRALGIA
     Route: 065
     Dates: start: 19980101, end: 20040101

REACTIONS (8)
  - ACUTE MYOCARDIAL INFARCTION [None]
  - CHEST PAIN [None]
  - CORONARY ARTERY DISEASE [None]
  - ERECTILE DYSFUNCTION [None]
  - GENERALISED ANXIETY DISORDER [None]
  - HYPERLIPIDAEMIA [None]
  - HYPERTENSION [None]
  - VENTRICULAR HYPOKINESIA [None]
